FAERS Safety Report 8832345 (Version 1)
Quarter: 2012Q4

REPORT INFORMATION
  Report Type: Report from Study
  Country: AT (occurrence: AT)
  Receive Date: 20121009
  Receipt Date: 20121009
  Transmission Date: 20130627
  Serious: Yes (Hospitalization)
  Sender: FDA-Public Use
  Company Number: AT-BAXTER-2012BAX015823

PATIENT
  Age: 45 Year
  Sex: Female
  Weight: 69.3 kg

DRUGS (20)
  1. ENDOXAN [Suspect]
     Indication: HER-2 POSITIVE BREAST CANCER
     Route: 042
     Dates: start: 20120619
  2. ENDOXAN [Suspect]
     Route: 042
     Dates: start: 20120710
  3. FLUOROURACIL [Suspect]
     Indication: HER-2 POSITIVE BREAST CANCER
     Route: 042
     Dates: start: 20120619
  4. FLUOROURACIL [Suspect]
     Route: 042
     Dates: start: 20120710
  5. EPIRUBICIN HYDROCHLORIDE [Suspect]
     Indication: HER-2 POSITIVE BREAST CANCER
     Route: 042
     Dates: start: 20120619
  6. EPIRUBICIN HYDROCHLORIDE [Suspect]
     Route: 042
     Dates: start: 20120710
  7. PERTUZUMAB [Suspect]
     Indication: MALIGNANT BREAST NEOPLASM
     Route: 042
     Dates: start: 20120827
  8. TRASTUZUMAB [Suspect]
     Indication: MALIGNANT BREAST NEOPLASM
     Route: 042
     Dates: start: 20120827
  9. DOCETAXEL [Suspect]
     Indication: MALIGNANT BREAST NEOPLASM
     Route: 042
     Dates: start: 20120827
  10. FERRETAB COMP [Concomitant]
     Indication: DRUG USE FOR UNKNOWN INDICATION
     Route: 065
  11. FILGRASTIM [Concomitant]
     Indication: FEBRILE NEUTROPENIA
     Route: 065
     Dates: start: 20120627, end: 20120629
  12. FILGRASTIM [Concomitant]
     Indication: SOFT TISSUE INFECTION
     Route: 065
     Dates: start: 20120902, end: 20120902
  13. FILGRASTIM [Concomitant]
     Route: 065
     Dates: start: 20120903, end: 20120903
  14. FILGRASTIM [Concomitant]
     Route: 058
     Dates: start: 20120903, end: 20120911
  15. ELECTROLYTES NOS/POLYETHYLENE GLYCOL [Concomitant]
     Indication: DRUG USE FOR UNKNOWN INDICATION
     Route: 065
     Dates: start: 20120627
  16. PEGINTERFERON ALFA-2B [Concomitant]
     Indication: DRUG USE FOR UNKNOWN INDICATION
     Dosage: 16
     Route: 065
     Dates: start: 20120709
  17. DICLOFENAC SODIUM [Concomitant]
     Indication: DRUG USE FOR UNKNOWN INDICATION
     Route: 065
     Dates: start: 20120709
  18. PANTOPRAZOLE SODIUM [Concomitant]
     Indication: DRUG USE FOR UNKNOWN INDICATION
     Route: 065
  19. TRAZODONE HYDROCHLORIDE [Concomitant]
     Indication: DRUG USE FOR UNKNOWN INDICATION
     Route: 065
     Dates: start: 20120827
  20. CEFMINOX SODIUM [Concomitant]
     Indication: DRUG USE FOR UNKNOWN INDICATION
     Route: 065
     Dates: start: 20120902, end: 20120902

REACTIONS (2)
  - Soft tissue infection [Recovered/Resolved]
  - Febrile neutropenia [Recovered/Resolved]
